FAERS Safety Report 9052554 (Version 1)
Quarter: 2013Q1

REPORT INFORMATION
  Report Type: Spontaneous
  Country: US (occurrence: US)
  Receive Date: 20130207
  Receipt Date: 20130207
  Transmission Date: 20140127
  Serious: Yes (Disabling)
  Sender: FDA-Public Use
  Company Number: US-GENZYME-FABR-1003011

PATIENT
  Sex: Male

DRUGS (1)
  1. FABRAZYME [Suspect]
     Indication: FABRY^S DISEASE
     Dosage: 50 MG, 1X/W
     Route: 042
     Dates: start: 2005

REACTIONS (1)
  - Foot amputation [Not Recovered/Not Resolved]
